FAERS Safety Report 24079080 (Version 1)
Quarter: 2024Q3

REPORT INFORMATION
  Report Type: Spontaneous
  Country: US (occurrence: None)
  Receive Date: 20240710
  Receipt Date: 20240710
  Transmission Date: 20241017
  Serious: Yes (unspecified)
  Sender: Public
  Company Number: None

PATIENT
  Age: 82 Year
  Sex: Male

DRUGS (1)
  1. IMATINIB MESYLATE [Suspect]
     Active Substance: IMATINIB MESYLATE

REACTIONS (3)
  - Gastrointestinal stromal tumour [None]
  - Neoplasm progression [None]
  - Anaemia [None]

NARRATIVE: CASE EVENT DATE: 20240706
